FAERS Safety Report 7475941-1 (Version None)
Quarter: 2011Q2

REPORT INFORMATION
  Report Type: 
  Country: None (occurrence: None)
  Receive Date: 20110512
  Receipt Date: 20110502
  Transmission Date: 20111010
  Serious: Yes (Other)
  Sender: FDA-Public Use
  Company Number: PHHY2011US24632

PATIENT
  Sex: Female
  Weight: 59 kg

DRUGS (5)
  1. TASIGNA [Suspect]
     Indication: CHRONIC MYELOID LEUKAEMIA
     Dosage: 300 MG, BID
     Route: 048
     Dates: start: 20110204, end: 20110317
  2. LISINOPRIL [Concomitant]
     Indication: HYPERTENSION
     Dosage: 10 G DAILY
  3. ALLOPURINOL [Concomitant]
     Dosage: 100 G, DAILY
  4. OMEPRAZOLE [Concomitant]
     Indication: GASTROOESOPHAGEAL REFLUX DISEASE
     Dosage: 20 G DAILY
  5. TASIGNA [Suspect]
     Dosage: 200 MG, BID
     Route: 048
     Dates: start: 20110322

REACTIONS (4)
  - SERUM FERRITIN INCREASED [None]
  - PRURITUS [None]
  - HEADACHE [None]
  - HEPATIC ENZYME INCREASED [None]
